FAERS Safety Report 18603963 (Version 1)
Quarter: 2020Q4

REPORT INFORMATION
  Report Type: Spontaneous
  Country: ES (occurrence: ES)
  Receive Date: 20201211
  Receipt Date: 20201211
  Transmission Date: 20210114
  Serious: Yes (Hospitalization)
  Sender: FDA-Public Use
  Company Number: ES-TEVA-2020-ES-1856761

PATIENT
  Sex: Male

DRUGS (2)
  1. MIDAZOLAM (2256A) [Suspect]
     Active Substance: MIDAZOLAM
     Dosage: SINGLE DOSE
     Dates: start: 202008, end: 202008
  2. FENTANILO (1543A) [Suspect]
     Active Substance: FENTANYL
     Dosage: SINGLE DOSE
     Route: 065
     Dates: start: 202008, end: 202008

REACTIONS (1)
  - Hypertensive crisis [Recovered/Resolved]

NARRATIVE: CASE EVENT DATE: 202008
